FAERS Safety Report 8778693 (Version 2)
Quarter: 2013Q1

REPORT INFORMATION
  Report Type: Report from Study
  Country: BE (occurrence: BE)
  Receive Date: 20120912
  Receipt Date: 20130308
  Transmission Date: 20140127
  Serious: Yes (Hospitalization)
  Sender: FDA-Public Use
  Company Number: BE-ROCHE-1117975

PATIENT
  Age: 53 Year
  Sex: Male
  Weight: 76 kg

DRUGS (6)
  1. VEMURAFENIB [Suspect]
     Indication: METASTATIC MALIGNANT MELANOMA
     Route: 048
     Dates: start: 20120503, end: 20130214
  2. IBUPROFEN [Concomitant]
     Indication: PAIN
     Route: 048
  3. KEPPRA [Concomitant]
     Indication: EPILEPSY
     Route: 048
  4. METRONIDAZOL [Concomitant]
     Indication: RASH
     Route: 061
  5. PANTOPRAZOLE [Concomitant]
     Indication: PROPHYLAXIS
     Route: 048
  6. DIPHANTOINE [Concomitant]
     Indication: STATUS EPILEPTICUS
     Route: 042
     Dates: start: 20120904

REACTIONS (3)
  - Status epilepticus [Recovered/Resolved]
  - Hyperthyroidism [Not Recovered/Not Resolved]
  - Disease progression [Not Recovered/Not Resolved]
